FAERS Safety Report 11329859 (Version 1)
Quarter: 2015Q3

REPORT INFORMATION
  Report Type: Report from Study
  Country: US (occurrence: US)
  Receive Date: 20150803
  Receipt Date: 20150803
  Transmission Date: 20151125
  Serious: Yes (Hospitalization, Other)
  Sender: FDA-Public Use
  Company Number: US-TEVA-553877USA

PATIENT
  Age: 79 Year
  Sex: Male
  Weight: 74.91 kg

DRUGS (9)
  1. PACKED RED BLOOD CELLS [Concomitant]
     Active Substance: HUMAN RED BLOOD CELL
     Dates: start: 20150226
  2. MICONAZOLE NITRATE. [Concomitant]
     Active Substance: MICONAZOLE NITRATE
     Indication: DECUBITUS ULCER
     Route: 061
  3. BENDAMUSTINE [Suspect]
     Active Substance: BENDAMUSTINE
     Indication: CHRONIC LYMPHOCYTIC LEUKAEMIA
     Dosage: 200 MILLIGRAM DAILY;
     Route: 042
     Dates: start: 20150112, end: 20150113
  4. TAMSULOSIN HYDROCHLORIDE. [Concomitant]
     Active Substance: TAMSULOSIN HYDROCHLORIDE
     Dosage: .4 MILLIGRAM DAILY; QHS
     Route: 048
  5. PACKED RED BLOOD CELLS [Concomitant]
     Active Substance: HUMAN RED BLOOD CELL
     Dates: start: 20150129
  6. IBRUTINIB [Suspect]
     Active Substance: IBRUTINIB
     Route: 065
  7. PACKED RED BLOOD CELLS [Concomitant]
     Active Substance: HUMAN RED BLOOD CELL
     Dates: start: 20150205
  8. ZINC OXIDE. [Concomitant]
     Active Substance: ZINC OXIDE
     Indication: DECUBITUS ULCER
     Route: 061
  9. BOOST [Concomitant]
     Dosage: 1 CAN PER DAY

REACTIONS (6)
  - Asthenia [Recovering/Resolving]
  - Fall [Unknown]
  - Failure to thrive [Unknown]
  - Dizziness [Unknown]
  - Weight decreased [Unknown]
  - Dyspnoea [Recovering/Resolving]

NARRATIVE: CASE EVENT DATE: 20150301
